FAERS Safety Report 6021292-1 (Version None)
Quarter: 2008Q4

REPORT INFORMATION
  Report Type: 
  Country: None (occurrence: None)
  Receive Date: 20081229
  Receipt Date: 20081219
  Transmission Date: 20090506
  Serious: Yes (Hospitalization)
  Sender: FDA-Public Use
  Company Number: BE-ABBOTT-08P-013-0494450-00

PATIENT
  Age: 54 Year
  Sex: Female

DRUGS (6)
  1. RITONAVIR [Suspect]
     Indication: HIV INFECTION
     Dates: start: 19970301
  2. TRIAMCINOLONE ACETONIDE [Suspect]
     Indication: DRUG USE FOR UNKNOWN INDICATION
     Route: 014
  3. LAMIVUDINE [Concomitant]
     Indication: HIV INFECTION
     Dates: start: 19970301
  4. DIDANOSINE [Concomitant]
     Indication: HIV INFECTION
     Dates: start: 19970301
  5. LOPINAVIR [Concomitant]
     Indication: HIV INFECTION
     Dates: start: 19970301
  6. DICLOFENAC SODIUM [Concomitant]
     Indication: DRUG USE FOR UNKNOWN INDICATION
     Route: 048

REACTIONS (2)
  - ADRENAL INSUFFICIENCY [None]
  - CUSHING'S SYNDROME [None]
